FAERS Safety Report 20656170 (Version 2)
Quarter: 2022Q2

REPORT INFORMATION
  Report Type: Spontaneous
  Country: US (occurrence: US)
  Receive Date: 20220330
  Receipt Date: 20220610
  Transmission Date: 20220721
  Serious: Yes (Hospitalization, Other)
  Sender: FDA-Public Use
  Company Number: US-JNJFOC-20220354007

PATIENT
  Age: 42 Year
  Sex: Female
  Weight: 117.9 kg

DRUGS (6)
  1. XARELTO [Suspect]
     Active Substance: RIVAROXABAN
     Indication: Anticoagulant therapy
     Route: 048
  2. TREPROSTINIL [Suspect]
     Active Substance: TREPROSTINIL
     Indication: Pulmonary arterial hypertension
     Dosage: EXTENDED RELEASE
     Route: 048
     Dates: end: 202203
  3. TREPROSTINIL [Suspect]
     Active Substance: TREPROSTINIL
     Dosage: EXTENDED RELEASE
     Route: 048
     Dates: end: 202203
  4. TREPROSTINIL [Suspect]
     Active Substance: TREPROSTINIL
     Dosage: EXTENDED RELEASE
     Route: 048
  5. SILDENAFIL CITRATE [Concomitant]
     Active Substance: SILDENAFIL CITRATE
  6. AMBRISENTAN [Concomitant]
     Active Substance: AMBRISENTAN

REACTIONS (4)
  - Gastrointestinal haemorrhage [Recovered/Resolved]
  - Hospitalisation [Recovered/Resolved]
  - Haematuria [Recovered/Resolved]
  - Headache [Recovered/Resolved]

NARRATIVE: CASE EVENT DATE: 20211208
